FAERS Safety Report 10650113 (Version 3)
Quarter: 2015Q1

REPORT INFORMATION
  Report Type: Spontaneous
  Country: US (occurrence: US)
  Receive Date: 20141212
  Receipt Date: 20150211
  Transmission Date: 20150720
  Serious: No
  Sender: FDA-Public Use
  Company Number: US-GLAXOSMITHKLINE-A1088975A

PATIENT

DRUGS (4)
  1. ABREVA [Suspect]
     Active Substance: DOCOSANOL
     Dosage: UNK
  2. NEOSPORIN [Concomitant]
     Active Substance: BACITRACIN ZINC\NEOMYCIN SULFATE\POLYMYXIN B SULFATE
     Route: 061
  3. SOAP CUTANEOUS EMULSION [Concomitant]
     Active Substance: SOAP
     Indication: ORAL HERPES
  4. ABREVA [Suspect]
     Active Substance: DOCOSANOL
     Indication: ORAL HERPES
     Dosage: UNK
     Route: 061
     Dates: start: 20140902, end: 20140912

REACTIONS (5)
  - Drug administration error [Unknown]
  - Oral herpes [Unknown]
  - Application site pallor [Unknown]
  - Erythema [Unknown]
  - Application site pain [Unknown]
